FAERS Safety Report 13791785 (Version 1)
Quarter: 2017Q3

REPORT INFORMATION
  Report Type: Spontaneous
  Country: US (occurrence: US)
  Receive Date: 20170725
  Receipt Date: 20170725
  Transmission Date: 20171127
  Serious: Yes (Hospitalization)
  Sender: FDA-Public Use
  Company Number: None

PATIENT
  Age: 65 Year
  Sex: Male
  Weight: 94.5 kg

DRUGS (7)
  1. LISINIPRIL [Concomitant]
     Active Substance: LISINOPRIL
  2. INSULIN PUMP [Concomitant]
     Active Substance: INSULIN NOS
  3. HUMALOG [Suspect]
     Active Substance: INSULIN LISPRO
     Indication: TYPE 1 DIABETES MELLITUS
     Dosage: ?          QUANTITY:1 INJECTION(S);OTHER ROUTE:INSULIN PUMP?
     Dates: start: 20170713, end: 20170714
  4. CHEWABLE ASPIRIN [Concomitant]
     Active Substance: ASPIRIN
  5. VITAMIN D [Concomitant]
     Active Substance: CHOLECALCIFEROL
  6. ATORVASTATIN [Concomitant]
     Active Substance: ATORVASTATIN
  7. INSULIN [Concomitant]
     Active Substance: INSULIN NOS

REACTIONS (4)
  - Diabetic ketoacidosis [None]
  - Drug ineffective [None]
  - Product quality issue [None]
  - Blood potassium decreased [None]

NARRATIVE: CASE EVENT DATE: 20170713
